FAERS Safety Report 5501637-9 (Version None)
Quarter: 2007Q4

REPORT INFORMATION
  Report Type: 
  Country: None (occurrence: None)
  Receive Date: 20071030
  Receipt Date: 20071018
  Transmission Date: 20080405
  Serious: Yes (Hospitalization)
  Sender: FDA-Public Use
  Company Number: US-ELI_LILLY_AND_COMPANY-US200710004546

PATIENT
  Sex: Female

DRUGS (5)
  1. FORTEO [Suspect]
  2. ANTIBIOTICS [Concomitant]
  3. YASMIN [Concomitant]
  4. PROZAC [Concomitant]
  5. REGLAN [Concomitant]

REACTIONS (1)
  - RESPIRATORY DISTRESS [None]
